FAERS Safety Report 14489757 (Version 4)
Quarter: 2018Q3

REPORT INFORMATION
  Report Type: Spontaneous
  Country: BR (occurrence: BR)
  Receive Date: 20180205
  Receipt Date: 20180704
  Transmission Date: 20181010
  Serious: Yes (Death, Hospitalization, Other)
  Sender: FDA-Public Use
  Company Number: BR-ALEXION-A201712407

PATIENT
  Age: 65 Year
  Sex: Male
  Weight: 80 kg

DRUGS (6)
  1. SOLIRIS [Suspect]
     Active Substance: ECULIZUMAB
     Dosage: 1200 MG, Q12D
     Route: 042
  2. SOLIRIS [Suspect]
     Active Substance: ECULIZUMAB
     Dosage: 1200 MG, UNK
     Route: 042
     Dates: end: 20170815
  3. SOLIRIS [Suspect]
     Active Substance: ECULIZUMAB
     Dosage: 1200 MG, Q2W
     Route: 042
     Dates: start: 20151102, end: 20170818
  4. MEROPENEM. [Concomitant]
     Active Substance: MEROPENEM
     Indication: PRODUCT USED FOR UNKNOWN INDICATION
     Dosage: UNK
     Route: 065
  5. SOLIRIS [Suspect]
     Active Substance: ECULIZUMAB
     Dosage: 900 MG, Q2W
     Route: 042
     Dates: start: 20141013
  6. SOLIRIS [Suspect]
     Active Substance: ECULIZUMAB
     Indication: PAROXYSMAL NOCTURNAL HAEMOGLOBINURIA
     Dosage: 600 MG EVERY 7 DAYS FOR 4 WEEKS
     Route: 042
     Dates: start: 20140915, end: 20141006

REACTIONS (31)
  - Anal abscess [Fatal]
  - Diarrhoea [Recovered/Resolved]
  - Kidney infection [Not Recovered/Not Resolved]
  - Stress [Unknown]
  - Laboratory test abnormal [Unknown]
  - Urinary retention [Recovered/Resolved]
  - Infection [Unknown]
  - Condition aggravated [Unknown]
  - Swelling [Unknown]
  - Vomiting [Recovered/Resolved]
  - Renal disorder [Unknown]
  - Anaemia [Not Recovered/Not Resolved]
  - Incorrect dose administered [Unknown]
  - Nausea [Unknown]
  - Urinary tract infection [Unknown]
  - Blood creatinine increased [Unknown]
  - Testicular swelling [Unknown]
  - Prostatomegaly [Unknown]
  - Adrenal insufficiency [Unknown]
  - Asthenia [Unknown]
  - Gait disturbance [Unknown]
  - Blood lactate dehydrogenase increased [Not Recovered/Not Resolved]
  - Mobility decreased [Unknown]
  - Epididymitis [Unknown]
  - Pain [Unknown]
  - Haemoglobin decreased [Unknown]
  - Acute myeloid leukaemia [Fatal]
  - Septic shock [Fatal]
  - Leukaemia [Unknown]
  - Oedema [Unknown]
  - Dysphagia [Unknown]

NARRATIVE: CASE EVENT DATE: 201606
